FAERS Safety Report 9176218 (Version 3)
Quarter: 2013Q3

REPORT INFORMATION
  Report Type: Spontaneous
  Country: DE (occurrence: DE)
  Receive Date: 20130321
  Receipt Date: 20130904
  Transmission Date: 20140515
  Serious: Yes (Hospitalization, Other)
  Sender: FDA-Public Use
  Company Number: DE-AMGEN-DEUSP2013010210

PATIENT
  Age: 73 Year
  Sex: Male
  Weight: 80 kg

DRUGS (5)
  1. ENBREL [Suspect]
     Indication: RHEUMATOID ARTHRITIS
     Dosage: 25 MG EVERY 7 DAYS
     Route: 065
     Dates: start: 20110102, end: 201107
  2. ENBREL [Suspect]
     Dosage: 25 MG EVERY 5 DAYS
     Route: 065
     Dates: start: 201107, end: 201211
  3. TRAMAL [Concomitant]
     Dosage: UNK
  4. GEMCITABINE [Concomitant]
     Dosage: 5 MG, UNK
  5. ARAVA [Concomitant]
     Dosage: UNK
     Dates: start: 201105, end: 201107

REACTIONS (2)
  - Lung neoplasm malignant [Not Recovered/Not Resolved]
  - Tuberculosis [Unknown]
